FAERS Safety Report 24345850 (Version 2)
Quarter: 2024Q4

REPORT INFORMATION
  Report Type: Spontaneous
  Country: TR (occurrence: TR)
  Receive Date: 20240920
  Receipt Date: 20241014
  Transmission Date: 20250115
  Serious: Yes (Hospitalization)
  Sender: GE HEALTHCARE
  Company Number: TR-GE HEALTHCARE-2024CSU010523

PATIENT
  Age: 41 Year
  Sex: Female
  Weight: 67 kg

DRUGS (2)
  1. CLARISCAN [Suspect]
     Active Substance: GADOTERATE MEGLUMINE
     Indication: Magnetic resonance imaging
     Dosage: UNK, TOTAL
     Route: 065
     Dates: start: 20240904, end: 20240904
  2. BUTYLSCOPOLAMINE BROMIDE [Concomitant]
     Active Substance: BUTYLSCOPOLAMINE BROMIDE
     Indication: Magnetic resonance imaging
     Dosage: UNK

REACTIONS (16)
  - Gait disturbance [Recovered/Resolved]
  - Oral herpes [Recovered/Resolved]
  - Nasal herpes [Recovered/Resolved]
  - Eye colour change [Recovering/Resolving]
  - Spinal pain [Recovered/Resolved]
  - Arthralgia [Recovered/Resolved]
  - Neck pain [Recovered/Resolved]
  - Pain [Recovered/Resolved]
  - Somnolence [Recovered/Resolved]
  - Asthenia [Recovered/Resolved]
  - Chills [Recovered/Resolved]
  - Dizziness [Recovered/Resolved]
  - Nausea [Recovered/Resolved]
  - Vomiting [Recovered/Resolved]
  - Pyrexia [Recovered/Resolved]
  - Headache [Recovered/Resolved]

NARRATIVE: CASE EVENT DATE: 20240904
